FAERS Safety Report 5737881-5 (Version None)
Quarter: 2008Q2

REPORT INFORMATION
  Report Type: 
  Country: None (occurrence: None)
  Receive Date: 20080514
  Receipt Date: 20080505
  Transmission Date: 20081010
  Serious: Yes (Other)
  Sender: FDA-Public Use
  Company Number: US-ALLERGAN-0803968US

PATIENT
  Sex: Female
  Weight: 113.38 kg

DRUGS (6)
  1. SANCTURA XR [Suspect]
     Indication: MICTURITION URGENCY
     Dosage: 60 MG, QD
     Route: 048
     Dates: start: 20080311
  2. SANCTURA XR [Suspect]
     Indication: POLLAKIURIA
  3. COMBIVENT [Concomitant]
     Indication: ASTHMA
  4. PRAVACHOL [Concomitant]
     Indication: GASTROOESOPHAGEAL REFLUX DISEASE
     Dosage: 40 MG, QD
     Route: 048
  5. DIOVAN [Concomitant]
     Indication: HYPERTENSION
     Dosage: UNK, QD
     Route: 048
  6. CELEBREX [Concomitant]
     Indication: ARTHRITIS
     Dosage: 200 MG, BID

REACTIONS (3)
  - ASTHMA [None]
  - CHOKING [None]
  - DRY MOUTH [None]
